FAERS Safety Report 9792847 (Version 1)
Quarter: 2013Q4

REPORT INFORMATION
  Report Type: Spontaneous
  Country: US (occurrence: None)
  Receive Date: 20131231
  Receipt Date: 20131231
  Transmission Date: 20140711
  Serious: Yes (Life-Threatening, Hospitalization)
  Sender: FDA-Public Use
  Company Number: None

PATIENT
  Age: 27 Year
  Sex: Female
  Weight: 61.24 kg

DRUGS (1)
  1. LUPRON DEPOT [Suspect]
     Indication: OFF LABEL USE
     Route: 030

REACTIONS (3)
  - Dizziness [None]
  - Suicidal ideation [None]
  - Major depression [None]
